FAERS Safety Report 12812583 (Version 2)
Quarter: 2016Q4

REPORT INFORMATION
  Report Type: Report from Study
  Country: None (occurrence: GB)
  Receive Date: 20161005
  Receipt Date: 20161121
  Transmission Date: 20170207
  Serious: Yes (Death, Hospitalization, Other)
  Sender: FDA-Public Use
  Company Number: GB-ABBVIE-16K-167-1744683-00

PATIENT
  Age: 76 Year
  Sex: Female
  Weight: 130 kg

DRUGS (1)
  1. HUMIRA [Suspect]
     Active Substance: ADALIMUMAB
     Indication: PSORIASIS
     Route: 058
     Dates: start: 20081111

REACTIONS (8)
  - Right ventricular enlargement [Fatal]
  - Fall [Fatal]
  - Personality disorder [Unknown]
  - Left ventricular failure [Unknown]
  - Acute kidney injury [Unknown]
  - Chronic obstructive pulmonary disease [Fatal]
  - Atrial fibrillation [Fatal]
  - Bronchiectasis [Fatal]

NARRATIVE: CASE EVENT DATE: 20160830
